FAERS Safety Report 20847653 (Version 3)
Quarter: 2022Q2

REPORT INFORMATION
  Report Type: Report from Study
  Country: US (occurrence: US)
  Receive Date: 20220519
  Receipt Date: 20220608
  Transmission Date: 20220721
  Serious: No
  Sender: FDA-Public Use
  Company Number: US-ORGANON-O2205USA001370

PATIENT
  Age: 30 Year
  Sex: Female
  Weight: 98.43 kg

DRUGS (1)
  1. IMPLANON [Suspect]
     Active Substance: ETONOGESTREL
     Indication: Contraception
     Dosage: STRENGTH 68 MG, 1 ROD, (DOSE/FREQUENCY REPORTED AS 68 MG, LEFT ARM
     Route: 059
     Dates: start: 20220516, end: 20220516

REACTIONS (3)
  - Complication of device insertion [Recovered/Resolved]
  - Product quality issue [Unknown]
  - No adverse event [Unknown]

NARRATIVE: CASE EVENT DATE: 20220516
